FAERS Safety Report 21099837 (Version 2)
Quarter: 2022Q3

REPORT INFORMATION
  Report Type: Report from Study
  Country: ES (occurrence: ES)
  Receive Date: 20220719
  Receipt Date: 20220720
  Transmission Date: 20221027
  Serious: Yes (Hospitalization, Other)
  Sender: FDA-Public Use
  Company Number: ES-GLAXOSMITHKLINE-ES2022GSK103017

PATIENT

DRUGS (16)
  1. NIRAPARIB [Suspect]
     Active Substance: NIRAPARIB
     Indication: Transitional cell cancer of the renal pelvis and ureter
     Dosage: 100 MG
     Route: 048
     Dates: start: 20220307, end: 20220703
  2. CABOZANTINIB [Suspect]
     Active Substance: CABOZANTINIB
     Indication: Transitional cell cancer of the renal pelvis and ureter
     Dosage: 40 MG
     Route: 048
     Dates: start: 20220307, end: 20220703
  3. PITAVASTATIN [Concomitant]
     Active Substance: PITAVASTATIN
     Indication: Prophylaxis
     Dosage: 4 MG
     Route: 048
     Dates: start: 20200616
  4. TAMSULOSIN [Concomitant]
     Active Substance: TAMSULOSIN
     Indication: Prophylaxis
     Dosage: 0.4 MG
     Route: 048
     Dates: start: 20220223
  5. EZETIMIBE [Concomitant]
     Active Substance: EZETIMIBE
     Indication: Prophylaxis
     Dosage: 10 MG
     Route: 048
     Dates: start: 20200616
  6. PANTOPRAZOLE SODIUM [Concomitant]
     Active Substance: PANTOPRAZOLE SODIUM
     Indication: Product used for unknown indication
     Dosage: 40 MG
     Route: 048
     Dates: start: 20200616
  7. ACETAMINOPHEN [Concomitant]
     Active Substance: ACETAMINOPHEN
     Indication: Prophylaxis
     Dosage: 1 G
     Route: 048
     Dates: start: 20220124
  8. ASPIRIN [Concomitant]
     Active Substance: ASPIRIN
     Indication: Prophylaxis
     Dosage: 100 MG
     Route: 048
     Dates: start: 20220223
  9. NOLOTIL [Concomitant]
     Indication: Prophylaxis
     Dosage: 1 DF
     Route: 048
     Dates: start: 20220411
  10. NOLOTIL [Concomitant]
     Indication: Inadequate analgesia
  11. LORAZEPAM [Concomitant]
     Active Substance: LORAZEPAM
     Indication: Prophylaxis
     Dosage: 1 MG
     Route: 048
     Dates: start: 20220615
  12. MORPHINE [Concomitant]
     Active Substance: MORPHINE
     Indication: Prophylaxis
     Dosage: 2 MG
     Route: 048
     Dates: start: 20220615
  13. METAMIZOLE [Concomitant]
     Active Substance: METAMIZOLE
     Indication: Prophylaxis
     Dosage: 3 ML
     Route: 048
     Dates: start: 20220621
  14. METOCLOPRAMIDE [Concomitant]
     Active Substance: METOCLOPRAMIDE
     Indication: Prophylaxis
     Dosage: 1 MG/ML
     Route: 048
     Dates: start: 20220621
  15. MIRTAZAPINE [Concomitant]
     Active Substance: MIRTAZAPINE
     Indication: Prophylaxis
     Dosage: 15 MG
     Route: 048
     Dates: start: 20220621
  16. POLYETHYLENE GLYCOL 3350\POTASSIUM CHLORIDE\SODIUM BICARBONATE\SODIUM [Concomitant]
     Active Substance: POLYETHYLENE GLYCOL 3350\POTASSIUM CHLORIDE\SODIUM BICARBONATE\SODIUM CHLORIDE
     Indication: Prophylaxis
     Dosage: 1 DF (PACKET)
     Route: 048
     Dates: start: 20220621

REACTIONS (2)
  - Pulmonary embolism [Recovered/Resolved]
  - Inadequate analgesia [Not Recovered/Not Resolved]

NARRATIVE: CASE EVENT DATE: 20220702
